FAERS Safety Report 22632850 (Version 1)
Quarter: 2023Q2

REPORT INFORMATION
  Report Type: Spontaneous
  Country: FR (occurrence: FR)
  Receive Date: 20230623
  Receipt Date: 20230623
  Transmission Date: 20230722
  Serious: Yes (Life-Threatening, Hospitalization)
  Sender: FDA-Public Use
  Company Number: FR-ROCHE-3374309

PATIENT
  Age: 23 Year
  Sex: Male

DRUGS (8)
  1. RIVOTRIL [Suspect]
     Active Substance: CLONAZEPAM
     Indication: Product used for unknown indication
     Dosage: LARGE QUANTITIES DEPENDING ON THE PATIENT
     Route: 065
  2. PREGABALIN [Suspect]
     Active Substance: PREGABALIN
     Indication: Product used for unknown indication
     Dosage: LARGE QUANTITIES DEPENDING ON THE PATIENT
     Route: 065
  3. ALPRAZOLAM [Concomitant]
     Active Substance: ALPRAZOLAM
     Dosage: IN THE EVENING
  4. KARDEGIC [Concomitant]
     Active Substance: ASPIRIN DL-LYSINE
     Dosage: LUNCHTIME
  5. QUETIAPINE [Concomitant]
     Active Substance: QUETIAPINE
     Dosage: LP IN THE EVENING AT BEDTIME
  6. TERALITHE [Concomitant]
     Active Substance: LITHIUM CARBONATE
     Dosage: LP 1000 MG IN THE EVENING
  7. TRIMEPRAZINE [Concomitant]
     Active Substance: TRIMEPRAZINE
     Indication: Insomnia
     Dosage: AT BEDTIME
  8. ATORVASTATIN [Concomitant]
     Active Substance: ATORVASTATIN
     Dosage: IN THE EVENING

REACTIONS (4)
  - Drug abuse [Unknown]
  - Coma [Recovered/Resolved]
  - Acute kidney injury [Unknown]
  - Rhabdomyolysis [Unknown]

NARRATIVE: CASE EVENT DATE: 20230427
